FAERS Safety Report 6424676-2 (Version None)
Quarter: 2009Q4

REPORT INFORMATION
  Report Type: 
  Country: None (occurrence: None)
  Receive Date: 20091102
  Receipt Date: 20091102
  Transmission Date: 20100525
  Serious: No
  Sender: FDA-Public Use
  Company Number: None

PATIENT
  Age: 50 Year
  Sex: Female

DRUGS (1)
  1. HALOPERIDOL [Suspect]
     Indication: SCHIZOPHRENIA, PARANOID TYPE
     Dosage: 5MG ONCE IM
     Route: 030
     Dates: start: 20090425, end: 20090425

REACTIONS (9)
  - COUGH [None]
  - DRUG INEFFECTIVE [None]
  - DYSPHAGIA [None]
  - NAUSEA [None]
  - SPEECH DISORDER [None]
  - SWOLLEN TONGUE [None]
  - TONGUE DISORDER [None]
  - VOMITING [None]
  - WHEEZING [None]
